FAERS Safety Report 25404183 (Version 1)
Quarter: 2025Q2

REPORT INFORMATION
  Report Type: Spontaneous
  Country: GB (occurrence: GB)
  Receive Date: 20250606
  Receipt Date: 20250606
  Transmission Date: 20250717
  Serious: Yes (Other)
  Sender: NOVO NORDISK
  Company Number: GB-MHRA-EMIS-9918-633772c2-44b2-43ce-b024-db90dc5641a1

PATIENT
  Age: 73 Year
  Sex: Male
  Weight: 101 kg

DRUGS (2)
  1. RYBELSUS [Suspect]
     Active Substance: SEMAGLUTIDE
     Indication: Product used for unknown indication
     Dosage: 14 MG, QD
     Dates: start: 20241218, end: 20250311
  2. AMOXICLAV [AMOXICILLIN;CLAVULANIC ACID] [Concomitant]
     Indication: Product used for unknown indication
     Route: 048

REACTIONS (5)
  - Mesenteric panniculitis [Recovering/Resolving]
  - Lymphadenitis [Unknown]
  - Pancreatitis [Unknown]
  - Abdominal pain [Unknown]
  - Amylase increased [Unknown]

NARRATIVE: CASE EVENT DATE: 20250212
